FAERS Safety Report 8111112-3 (Version None)
Quarter: 2012Q1

REPORT INFORMATION
  Report Type: 
  Country: None (occurrence: None)
  Receive Date: 20120203
  Receipt Date: 20110502
  Transmission Date: 20120608
  Serious: No
  Sender: FDA-Public Use
  Company Number: US-GLAXOSMITHKLINE-A0925330A

PATIENT
  Age: 44 Year
  Sex: Male

DRUGS (4)
  1. TRILEPTAL [Suspect]
     Indication: CONVULSION
     Route: 048
  2. CLARITIN [Concomitant]
  3. LAMICTAL [Suspect]
     Indication: CONVULSION
     Route: 048
     Dates: start: 20000101
  4. ZYRTEC [Concomitant]

REACTIONS (2)
  - RASH [None]
  - PRURITUS [None]
